FAERS Safety Report 8322105-5 (Version None)
Quarter: 2012Q2

REPORT INFORMATION
  Report Type: 
  Country: None (occurrence: None)
  Receive Date: 20120430
  Receipt Date: 20120425
  Transmission Date: 20120825
  Serious: Yes (Death)
  Sender: FDA-Public Use
  Company Number: US-GILEAD-2012-0053442

PATIENT
  Sex: Female

DRUGS (13)
  1. LETAIRIS [Suspect]
     Indication: PULMONARY HYPERTENSION
     Dosage: 5 MG, UNK
     Route: 048
  2. ASPIRIN [Concomitant]
  3. DIGOXIN [Concomitant]
  4. WARFARIN SODIUM [Concomitant]
  5. ATACAND [Concomitant]
  6. NOVOLOG [Concomitant]
  7. SIMVASTATIN [Concomitant]
  8. FUROSEMIDE [Concomitant]
  9. LORAZEPAM [Concomitant]
  10. LANTUS [Concomitant]
  11. METOPROLOL SUCCINATE [Concomitant]
  12. PROZAC [Concomitant]
  13. SPIRONOLACTONE [Concomitant]

REACTIONS (1)
  - DEATH [None]
